FAERS Safety Report 6883177-8 (Version None)
Quarter: 2010Q3

REPORT INFORMATION
  Report Type: 
  Country: None (occurrence: None)
  Receive Date: 20100727
  Receipt Date: 20070730
  Transmission Date: 20110219
  Serious: Yes (Death, Other)
  Sender: FDA-Public Use
  Company Number: US-PFIZER INC-2007016270

PATIENT
  Sex: Male
  Weight: 99.8 kg

DRUGS (2)
  1. CELEBREX [Suspect]
     Indication: OSTEOARTHRITIS
     Route: 048
     Dates: start: 20010827, end: 20050110
  2. VIOXX [Suspect]
     Indication: ARTHRITIS
     Dates: start: 19990819, end: 20040930

REACTIONS (1)
  - MYOCARDIAL INFARCTION [None]
